FAERS Safety Report 8476824-0 (Version None)
Quarter: 2012Q2

REPORT INFORMATION
  Report Type: 
  Country: None (occurrence: None)
  Receive Date: 20120629
  Receipt Date: 20120621
  Transmission Date: 20120825
  Serious: Yes (Other)
  Sender: FDA-Public Use
  Company Number: US-JNJFOC-20120604983

PATIENT
  Age: 58 Year
  Sex: Female

DRUGS (2)
  1. REMICADE [Suspect]
     Indication: PRODUCT USED FOR UNKNOWN INDICATION
     Route: 042
     Dates: start: 20090706, end: 20090706
  2. REMICADE [Suspect]
     Dosage: 6 MG/KG
     Route: 042
     Dates: start: 20090112

REACTIONS (1)
  - ADENOCARCINOMA PANCREAS [None]
